FAERS Safety Report 17042168 (Version 2)
Quarter: 2019Q4

REPORT INFORMATION
  Report Type: Spontaneous
  Country: SG (occurrence: SG)
  Receive Date: 20191118
  Receipt Date: 20191122
  Transmission Date: 20200122
  Serious: Yes (Other)
  Sender: FDA-Public Use
  Company Number: SG-ROCHE-2467512

PATIENT
  Sex: Male

DRUGS (17)
  1. LUCENTIS [Suspect]
     Active Substance: RANIBIZUMAB
     Route: 042
     Dates: start: 20181205
  2. LUCENTIS [Suspect]
     Active Substance: RANIBIZUMAB
     Route: 042
     Dates: start: 20190213
  3. LUCENTIS [Suspect]
     Active Substance: RANIBIZUMAB
     Route: 042
     Dates: start: 20190502
  4. LUCENTIS [Suspect]
     Active Substance: RANIBIZUMAB
     Route: 042
     Dates: start: 20190116
  5. EYLEA [Suspect]
     Active Substance: AFLIBERCEPT
     Route: 042
     Dates: start: 20180518
  6. LUCENTIS [Suspect]
     Active Substance: RANIBIZUMAB
     Indication: NEOVASCULAR AGE-RELATED MACULAR DEGENERATION
     Route: 042
     Dates: start: 20181019
  7. LUCENTIS [Suspect]
     Active Substance: RANIBIZUMAB
     Route: 042
     Dates: start: 20190320
  8. EYLEA [Suspect]
     Active Substance: AFLIBERCEPT
     Route: 042
     Dates: start: 20180403
  9. EYLEA [Suspect]
     Active Substance: AFLIBERCEPT
     Route: 042
     Dates: start: 20180720
  10. EYLEA [Suspect]
     Active Substance: AFLIBERCEPT
     Route: 042
     Dates: start: 20190807
  11. EYLEA [Suspect]
     Active Substance: AFLIBERCEPT
     Route: 042
     Dates: start: 20190911
  12. EYLEA [Suspect]
     Active Substance: AFLIBERCEPT
     Route: 042
     Dates: start: 20180814
  13. EYLEA [Suspect]
     Active Substance: AFLIBERCEPT
     Route: 042
     Dates: start: 20180911
  14. LUCENTIS [Suspect]
     Active Substance: RANIBIZUMAB
     Route: 042
     Dates: start: 20181107
  15. EYLEA [Suspect]
     Active Substance: AFLIBERCEPT
     Indication: NEOVASCULAR AGE-RELATED MACULAR DEGENERATION
     Route: 042
     Dates: start: 20180306
  16. EYLEA [Suspect]
     Active Substance: AFLIBERCEPT
     Route: 042
     Dates: start: 20190611
  17. EYLEA [Suspect]
     Active Substance: AFLIBERCEPT
     Route: 042
     Dates: start: 20190710

REACTIONS (3)
  - Haemorrhage [Unknown]
  - Vision blurred [Unknown]
  - Drug ineffective [Unknown]
